FAERS Safety Report 7919384-2 (Version None)
Quarter: 2011Q4

REPORT INFORMATION
  Report Type: 
  Country: None (occurrence: None)
  Receive Date: 20111117
  Receipt Date: 20111111
  Transmission Date: 20120403
  Serious: Yes (Other)
  Sender: FDA-Public Use
  Company Number: BR-JNJFOC-20111012649

PATIENT
  Sex: Female
  Weight: 5 kg

DRUGS (2)
  1. TYLENOL [Suspect]
     Indication: PYREXIA
     Route: 048
     Dates: start: 20111024, end: 20111024
  2. TYLENOL [Suspect]
     Route: 048

REACTIONS (3)
  - FREQUENT BOWEL MOVEMENTS [None]
  - OCCULT BLOOD [None]
  - OVERDOSE [None]
